FAERS Safety Report 17314210 (Version 1)
Quarter: 2020Q1

REPORT INFORMATION
  Report Type: Spontaneous
  Country: US (occurrence: US)
  Receive Date: 20200124
  Receipt Date: 20200124
  Transmission Date: 20200409
  Serious: Yes (Hospitalization, Other)
  Sender: FDA-Public Use
  Company Number: US-ACCORD-170483

PATIENT
  Sex: Female

DRUGS (2)
  1. SERTRALINE/SERTRALINE HYDROCHLORIDE [Concomitant]
     Active Substance: SERTRALINE HYDROCHLORIDE
     Dosage: 20 MG DAILY
  2. BUPROPION/BUPROPION HYDROCHLORIDE [Suspect]
     Active Substance: BUPROPION HYDROCHLORIDE
     Indication: PRODUCT USED FOR UNKNOWN INDICATION
     Dosage: BUPROPION?XL 150 MG DAILY

REACTIONS (4)
  - Mental status changes [Recovered/Resolved]
  - Cardiogenic shock [Recovered/Resolved]
  - Encephalopathy [Recovered/Resolved]
  - Overdose [Unknown]
